FAERS Safety Report 4328123-6 (Version None)
Quarter: 2004Q1

REPORT INFORMATION
  Report Type: 
  Country: None (occurrence: None)
  Receive Date: 20040325
  Receipt Date: 20040315
  Transmission Date: 20041129
  Serious: Yes (Hospitalization)
  Sender: FDA-Public Use
  Company Number: HQWYE251623FEB04

PATIENT
  Age: 53 Year
  Sex: Male
  Weight: 102.6 kg

DRUGS (9)
  1. EFFEXOR XR [Suspect]
     Indication: DEPRESSION
     Dosage: 10 + 150 + 300 MG 1X PER 1 DAY, ORAL
     Route: 048
     Dates: start: 20031201, end: 20031201
  2. EFFEXOR XR [Suspect]
     Indication: DEPRESSION
     Dosage: 10 + 150 + 300 MG 1X PER 1 DAY, ORAL
     Route: 048
     Dates: start: 20040217, end: 20040201
  3. EFFEXOR XR [Suspect]
     Indication: DEPRESSION
     Dosage: 10 + 150 + 300 MG 1X PER 1 DAY, ORAL
     Route: 048
     Dates: start: 20040101, end: 20040211
  4. EFFEXOR XR [Suspect]
     Indication: DEPRESSION
     Dosage: 10 + 150 + 300 MG 1X PER 1 DAY, ORAL
     Route: 048
     Dates: start: 20040201, end: 20040216
  5. EFFEXOR XR [Suspect]
     Indication: DEPRESSION
     Dosage: 10 + 150 + 300 MG 1X PER 1 DAY, ORAL
     Route: 048
     Dates: start: 20040201, end: 20040310
  6. DARVOCET-N (DEXTROPROXYPHENE/PARACETAMOL) [Concomitant]
  7. TYLENOL [Concomitant]
  8. ZOCOR [Concomitant]
  9. AMBIEN [Concomitant]

REACTIONS (19)
  - BLOOD CREATININE INCREASED [None]
  - BLOOD PRESSURE INCREASED [None]
  - BLOOD UREA INCREASED [None]
  - CHILLS [None]
  - CONDITION AGGRAVATED [None]
  - CONSTIPATION [None]
  - DEHYDRATION [None]
  - DEPRESSION [None]
  - DYSPNOEA [None]
  - ERUCTATION [None]
  - GASTROINTESTINAL DISORDER [None]
  - IMPAIRED GASTRIC EMPTYING [None]
  - MARKEDLY REDUCED DIETARY INTAKE [None]
  - NAUSEA [None]
  - NEPHROLITHIASIS [None]
  - RETCHING [None]
  - SLEEP DISORDER [None]
  - SOMNOLENCE [None]
  - URETERIC OBSTRUCTION [None]
